FAERS Safety Report 24076685 (Version 1)
Quarter: 2024Q3

REPORT INFORMATION
  Report Type: Spontaneous
  Country: ZA (occurrence: None)
  Receive Date: 20240711
  Receipt Date: 20240711
  Transmission Date: 20241017
  Serious: Yes (Hospitalization)
  Sender: ASTRAZENECA
  Company Number: 2024A154423

PATIENT
  Age: 10957 Day
  Sex: Female

DRUGS (3)
  1. BUDESONIDE\FORMOTEROL [Suspect]
     Active Substance: BUDESONIDE\FORMOTEROL
     Indication: Asthma
     Dosage: 120UG/INHAL;UNKNOWN UNKNOWN
     Route: 055
  2. FEXO [Concomitant]
     Indication: Hypersensitivity
     Route: 048
  3. ALBUTEROL [Concomitant]
     Active Substance: ALBUTEROL
     Indication: Bronchospasm
     Dosage: 200UG/INHAL
     Route: 055

REACTIONS (2)
  - Respiratory disorder [Unknown]
  - Intentional dose omission [Unknown]
